FAERS Safety Report 7085189-0 (Version None)
Quarter: 2010Q4

REPORT INFORMATION
  Report Type: 
  Country: None (occurrence: None)
  Receive Date: 20101105
  Receipt Date: 20101027
  Transmission Date: 20110411
  Serious: Yes (Other)
  Sender: FDA-Public Use
  Company Number: CA-JNJFOC-20101100138

PATIENT
  Sex: Male
  Weight: 90.2 kg

DRUGS (3)
  1. REMICADE [Suspect]
     Indication: ANKYLOSING SPONDYLITIS
     Dosage: 33RD INFUSION
     Route: 042
  2. REMICADE [Suspect]
     Route: 042
  3. CELEBREX [Concomitant]

REACTIONS (1)
  - SPLENOMEGALY [None]
